FAERS Safety Report 4534975-7 (Version None)
Quarter: 2004Q4

REPORT INFORMATION
  Report Type: 
  Country: None (occurrence: None)
  Receive Date: 20041222
  Receipt Date: 20041011
  Transmission Date: 20050328
  Serious: No
  Sender: FDA-Public Use
  Company Number: US-BRISTOL-MYERS SQUIBB COMPANY-12728226

PATIENT
  Sex: Female

DRUGS (7)
  1. PRAVACHOL [Suspect]
     Indication: BLOOD CHOLESTEROL INCREASED
     Route: 048
  2. TRAMADOL HCL [Concomitant]
     Dosage: 2-4 TABLETS DAILY
     Route: 048
  3. IBUPROFEN [Concomitant]
  4. SECTRAL [Concomitant]
  5. PROZAC [Concomitant]
  6. LOZOL [Concomitant]
  7. MULTIVITAMIN [Concomitant]

REACTIONS (1)
  - PAIN IN EXTREMITY [None]
